FAERS Safety Report 20374445 (Version 1)
Quarter: 2022Q1

REPORT INFORMATION
  Report Type: Spontaneous
  Country: US (occurrence: US)
  Receive Date: 20220125
  Receipt Date: 20220125
  Transmission Date: 20220423
  Serious: No
  Sender: FDA-Public Use
  Company Number: US-TARO-2021TAR00125

PATIENT

DRUGS (1)
  1. CLOTRIMAZOLE [Suspect]
     Active Substance: CLOTRIMAZOLE
     Indication: Vulvovaginal mycotic infection
     Dosage: QD, APPLICATORFUL ONCE AT BEDTIME
     Route: 067
     Dates: start: 20210129

REACTIONS (2)
  - Malabsorption from application site [Unknown]
  - Product prescribing issue [Unknown]
